FAERS Safety Report 6494232-9 (Version None)
Quarter: 2009Q4

REPORT INFORMATION
  Report Type: 
  Country: None (occurrence: None)
  Receive Date: 20091214
  Receipt Date: 20090126
  Transmission Date: 20100525
  Serious: No
  Sender: FDA-Public Use
  Company Number: US-BRISTOL-MYERS SQUIBB COMPANY-14484174

PATIENT
  Age: 54 Year
  Sex: Female

DRUGS (1)
  1. ABILIFY [Suspect]
     Dosage: STARTED WITH 2MG THEN INCREASED TO 5MG

REACTIONS (1)
  - OEDEMA PERIPHERAL [None]
